FAERS Safety Report 4371088-1 (Version None)
Quarter: 2004Q2

REPORT INFORMATION
  Report Type: 
  Country: None (occurrence: None)
  Receive Date: 20040604
  Receipt Date: 20040427
  Transmission Date: 20050107
  Serious: Yes (Death, Life-Threatening, Hospitalization)
  Sender: FDA-Public Use
  Company Number: FR-MERCK-0404FRA00089

PATIENT
  Age: 69 Year
  Sex: Male

DRUGS (5)
  1. CARBAMAZEPINE [Concomitant]
     Indication: EPILEPSY
     Route: 048
  2. PHENOBARBITAL [Concomitant]
     Indication: EPILEPSY
     Route: 048
  3. VIOXX [Suspect]
     Indication: TOOTHACHE
     Route: 048
     Dates: start: 20040420, end: 20040422
  4. TOPIRAMATE [Concomitant]
     Indication: EPILEPSY
     Route: 048
  5. VALPROATE SODIUM [Concomitant]
     Indication: EPILEPSY
     Route: 048

REACTIONS (3)
  - ACUTE RESPIRATORY DISTRESS SYNDROME [None]
  - VIRAL INFECTION [None]
  - WHITE BLOOD CELL COUNT INCREASED [None]
